FAERS Safety Report 9379620 (Version 1)
Quarter: 2013Q2

REPORT INFORMATION
  Report Type: Spontaneous
  Country: CH (occurrence: None)
  Receive Date: 20130627
  Receipt Date: 20130627
  Transmission Date: 20140414
  Serious: Yes (Hospitalization)
  Sender: FDA-Public Use
  Company Number: NSR_01165_2013

PATIENT
  Age: 14 Year
  Sex: Male

DRUGS (1)
  1. BACLOFEN [Suspect]
     Indication: MUSCLE SPASTICITY
     Dosage: STEPWISE INCREASED
     Route: 037

REACTIONS (6)
  - Pallor [None]
  - Vomiting [None]
  - Drooling [None]
  - Gastrooesophageal reflux disease [None]
  - Regurgitation [None]
  - General physical health deterioration [None]
